FAERS Safety Report 16963225 (Version 1)
Quarter: 2019Q4

REPORT INFORMATION
  Report Type: Spontaneous
  Country: US (occurrence: US)
  Receive Date: 20191025
  Receipt Date: 20191025
  Transmission Date: 20200122
  Serious: Yes (Other)
  Sender: FDA-Public Use
  Company Number: US-ASTRAZENECA-2019SF50406

PATIENT
  Age: 26071 Day
  Sex: Female
  Weight: 84.7 kg

DRUGS (21)
  1. ARIMIDEX [Suspect]
     Active Substance: ANASTROZOLE
     Route: 048
     Dates: start: 20180913, end: 201902
  2. METOPROLOL TARTARATE [Suspect]
     Active Substance: METOPROLOL TARTRATE
     Route: 065
  3. BUMETANIDE. [Concomitant]
     Active Substance: BUMETANIDE
     Indication: OEDEMA
  4. IBRANCE [Concomitant]
     Active Substance: PALBOCICLIB
     Route: 048
  5. POTASSIUM CHLORIDE. [Concomitant]
     Active Substance: POTASSIUM CHLORIDE
     Route: 048
  6. TRAMADOL. [Concomitant]
     Active Substance: TRAMADOL
     Indication: PAIN
     Dosage: 0.5 TAB Q8HR AS NEEDED
     Route: 048
  7. TUMS [Concomitant]
     Active Substance: CALCIUM CARBONATE
     Dosage: PRN
  8. IBRANCE [Concomitant]
     Active Substance: PALBOCICLIB
     Route: 048
  9. ELIQUIS [Concomitant]
     Active Substance: APIXABAN
  10. EXEMESTANE. [Concomitant]
     Active Substance: EXEMESTANE
     Route: 048
     Dates: start: 201903
  11. FLUTICASONE. [Concomitant]
     Active Substance: FLUTICASONE
     Dosage: 50 MCG/ACTUATION, 2 SPRAYS EVERY DAY
  12. GLIPIZIDE. [Concomitant]
     Active Substance: GLIPIZIDE
  13. SILDENAFIL. [Concomitant]
     Active Substance: SILDENAFIL
     Route: 048
  14. VITAMIN D3 [Concomitant]
     Active Substance: CHOLECALCIFEROL
     Route: 048
  15. SYMBICORT [Suspect]
     Active Substance: BUDESONIDE\FORMOTEROL FUMARATE DIHYDRATE
     Route: 055
  16. ONDANSETRON [Concomitant]
     Active Substance: ONDANSETRON
     Route: 048
  17. TYLENOL [Concomitant]
     Active Substance: ACETAMINOPHEN
     Route: 048
  18. IBRANCE [Concomitant]
     Active Substance: PALBOCICLIB
     Route: 048
  19. BUMETANIDE. [Concomitant]
     Active Substance: BUMETANIDE
     Indication: WEIGHT INCREASED
  20. SILDENAFIL. [Concomitant]
     Active Substance: SILDENAFIL
     Route: 048
  21. LISINOPRIL. [Concomitant]
     Active Substance: LISINOPRIL
     Route: 048

REACTIONS (66)
  - Squamous cell carcinoma of skin [Unknown]
  - Neoplasm skin [Unknown]
  - Vitamin B complex deficiency [Unknown]
  - Tinnitus [Unknown]
  - Lung disorder [Unknown]
  - Restrictive pulmonary disease [Unknown]
  - Cholelithiasis [Unknown]
  - Hypoxia [Unknown]
  - Back pain [Unknown]
  - Anxiety [Unknown]
  - Erythema [Unknown]
  - Pulmonary hypertension [Unknown]
  - Pulmonary embolism [Unknown]
  - Diabetic complication [Unknown]
  - Sleep apnoea syndrome [Unknown]
  - Rhinitis allergic [Unknown]
  - Actinic keratosis [Unknown]
  - Deep vein thrombosis [Unknown]
  - Diabetic nephropathy [Unknown]
  - Asthma [Unknown]
  - Skin degenerative disorder [Unknown]
  - Xeroderma [Unknown]
  - Conjunctivitis allergic [Unknown]
  - Eczema nummular [Unknown]
  - Basal cell carcinoma [Unknown]
  - Melanocytic naevus [Unknown]
  - Diabetic neuropathy [Unknown]
  - Hypovitaminosis [Unknown]
  - Type V hyperlipidaemia [Unknown]
  - Essential hypertension [Unknown]
  - Cor pulmonale chronic [Unknown]
  - Upper respiratory tract infection [Unknown]
  - Bronchiectasis [Unknown]
  - Idiopathic pulmonary fibrosis [Unknown]
  - Urinary tract infection [Unknown]
  - Fatigue [Unknown]
  - Metastases to lymph nodes [Unknown]
  - Invasive ductal breast carcinoma [Unknown]
  - Breast neoplasm [Unknown]
  - Renal impairment [Unknown]
  - Seborrhoeic keratosis [Unknown]
  - Constipation [Unknown]
  - Rash [Unknown]
  - Arthritis [Unknown]
  - Type 2 diabetes mellitus [Unknown]
  - Gout [Unknown]
  - Bronchitis chronic [Unknown]
  - Gastrooesophageal reflux disease [Unknown]
  - Chronic kidney disease [Unknown]
  - Photosensitivity reaction [Unknown]
  - Spondylolisthesis [Unknown]
  - Pain in extremity [Unknown]
  - Skin abrasion [Unknown]
  - Arteriosclerosis coronary artery [Unknown]
  - Decreased appetite [Unknown]
  - Diarrhoea [Recovering/Resolving]
  - Bone pain [Unknown]
  - Pulmonary arterial hypertension [Unknown]
  - Cardiac failure congestive [Unknown]
  - Left ventricular failure [Unknown]
  - Lung disorder [Unknown]
  - Hyperkeratosis [Unknown]
  - Osteoarthritis [Unknown]
  - Malignant neoplasm progression [Unknown]
  - Inguinal hernia [Unknown]
  - Dyspnoea [Unknown]

NARRATIVE: CASE EVENT DATE: 20100124
